FAERS Safety Report 5694205-X (Version None)
Quarter: 2008Q2

REPORT INFORMATION
  Report Type: 
  Country: None (occurrence: None)
  Receive Date: 20080402
  Receipt Date: 20080317
  Transmission Date: 20081010
  Serious: Yes (Other)
  Sender: FDA-Public Use
  Company Number: 2008JP000827

PATIENT
  Age: 56 Year
  Sex: Female

DRUGS (4)
  1. PROGRAF [Suspect]
     Indication: RENAL TRANSPLANT
     Dosage: 0.15 MG/KG, BID, ORAL; ORAL
     Route: 048
  2. PROGRAF [Suspect]
     Indication: RENAL TRANSPLANT
     Dosage: 0.05 MG/KG, CONTINUOUS, IV NOS
     Route: 042
  3. CELLCEPT [Concomitant]
  4. AZATHIOPRINE [Concomitant]

REACTIONS (5)
  - ASCITES [None]
  - COMPLICATIONS OF TRANSPLANTED KIDNEY [None]
  - PERITONEAL DIALYSIS [None]
  - THROMBOTIC MICROANGIOPATHY [None]
  - TRANSPLANT REJECTION [None]
